FAERS Safety Report 15962327 (Version 1)
Quarter: 2019Q1

REPORT INFORMATION
  Report Type: Spontaneous
  Country: US (occurrence: US)
  Receive Date: 20190214
  Receipt Date: 20190214
  Transmission Date: 20190417
  Serious: No
  Sender: FDA-Public Use
  Company Number: PHEH2019US006234

PATIENT
  Sex: Female

DRUGS (1)
  1. COSENTYX [Suspect]
     Active Substance: SECUKINUMAB
     Indication: PRODUCT USED FOR UNKNOWN INDICATION
     Dosage: 300 ML, QW
     Route: 065

REACTIONS (4)
  - Wrong technique in product usage process [Unknown]
  - Urticaria [Unknown]
  - Mass [Unknown]
  - Injection site hypersensitivity [Unknown]
